FAERS Safety Report 5290551-2 (Version None)
Quarter: 2007Q2

REPORT INFORMATION
  Report Type: 
  Country: None (occurrence: None)
  Receive Date: 20070405
  Receipt Date: 20070405
  Transmission Date: 20071010
  Serious: Yes (Hospitalization)
  Sender: FDA-Public Use
  Company Number: None

PATIENT
  Sex: Female
  Weight: 39 kg

DRUGS (4)
  1. MERCAPTOPURINE [Suspect]
     Dosage: 4300 MG
  2. METHOTREXATE [Suspect]
     Dosage: 117.5 MG
  3. DEXAMETHASONE [Suspect]
     Dosage: 84 MG
  4. VINCRISTINE SULFATE [Suspect]
     Dosage: 3.6 MG

REACTIONS (4)
  - ANAEMIA [None]
  - HEPATIC FAILURE [None]
  - HEPATIC NECROSIS [None]
  - INFLUENZA [None]
